FAERS Safety Report 23721651 (Version 1)
Quarter: 2024Q2

REPORT INFORMATION
  Report Type: Spontaneous
  Country: US (occurrence: US)
  Receive Date: 20240409
  Receipt Date: 20240409
  Transmission Date: 20240716
  Serious: No
  Sender: FDA-Public Use
  Company Number: US-AMNEAL PHARMACEUTICALS-2023-AMRX-04382

PATIENT
  Age: 67 Year
  Sex: Male
  Weight: 83.9 kg

DRUGS (1)
  1. BUPRENORPHINE AND NALOXONE [Suspect]
     Active Substance: BUPRENORPHINE HYDROCHLORIDE\NALOXONE HYDROCHLORIDE
     Indication: Drug use disorder
     Dosage: 2 TABLETS, BID (02 TABLETS IN THE MORNING AND 02 TABLETS IN THE AFTERNOON)
     Route: 048
     Dates: start: 20231213

REACTIONS (13)
  - Muscle spasms [Unknown]
  - Illness [Recovered/Resolved]
  - Extrasystoles [Unknown]
  - Palpitations [Unknown]
  - Neck pain [Unknown]
  - Pain in extremity [Unknown]
  - Arthralgia [Unknown]
  - Headache [Recovered/Resolved]
  - Nausea [Unknown]
  - Vision blurred [Unknown]
  - Vomiting [Unknown]
  - Product taste abnormal [Unknown]
  - Product substitution issue [Unknown]

NARRATIVE: CASE EVENT DATE: 20231213
